FAERS Safety Report 6743609-2 (Version None)
Quarter: 2010Q2

REPORT INFORMATION
  Report Type: 
  Country: None (occurrence: None)
  Receive Date: 20100527
  Receipt Date: 20100520
  Transmission Date: 20101027
  Serious: Yes (Death, Life-Threatening, Hospitalization, Other)
  Sender: FDA-Public Use
  Company Number: US-CELGENEUS-163-21880-10040022

PATIENT
  Sex: Male

DRUGS (2)
  1. REVLIMID [Suspect]
     Indication: MULTIPLE MYELOMA
     Route: 048
     Dates: start: 20100101, end: 20100201
  2. REVLIMID [Suspect]
     Route: 048
     Dates: start: 20091208

REACTIONS (4)
  - FAILURE TO THRIVE [None]
  - HYPOGLYCAEMIA [None]
  - NEUTROPHIL COUNT DECREASED [None]
  - SEPTIC SHOCK [None]
